FAERS Safety Report 8309320-1 (Version None)
Quarter: 2012Q2

REPORT INFORMATION
  Report Type: 
  Country: None (occurrence: None)
  Receive Date: 20120425
  Receipt Date: 20120413
  Transmission Date: 20120825
  Serious: Yes (Other)
  Sender: FDA-Public Use
  Company Number: JP-ASTRAZENECA-2012SE25869

PATIENT
  Sex: Female

DRUGS (19)
  1. SEROQUEL [Suspect]
     Indication: SCHIZOPHRENIA
     Route: 048
  2. SILECE [Concomitant]
     Route: 048
     Dates: end: 20120109
  3. PENTOBARBITAL CAP [Concomitant]
     Route: 048
  4. ZYPREXA [Concomitant]
     Route: 048
     Dates: start: 20120110
  5. ZOLPIDEM [Suspect]
     Route: 048
     Dates: end: 20120109
  6. HIRNAMIN [Concomitant]
     Route: 048
     Dates: end: 20120109
  7. CYMBALTA [Concomitant]
     Route: 048
     Dates: end: 20120109
  8. AMOBAN [Concomitant]
     Route: 048
  9. DEPAS [Concomitant]
     Route: 048
     Dates: end: 20120109
  10. ABILIFY [Concomitant]
     Route: 048
     Dates: start: 20120110
  11. DEPAKENE [Concomitant]
     Route: 048
     Dates: end: 20120109
  12. PROMETHAZINE HCL [Concomitant]
     Route: 048
     Dates: end: 20120109
  13. EPINASTINE HYDROCHLORIDE [Concomitant]
     Route: 048
     Dates: end: 20120109
  14. PALIPERIDONE [Concomitant]
     Route: 048
     Dates: end: 20120109
  15. LITHIUM CARBONATE [Concomitant]
     Route: 048
     Dates: end: 20120109
  16. DEPAKENE [Concomitant]
     Route: 048
     Dates: start: 20120110
  17. TETRAMIDE [Concomitant]
     Route: 048
     Dates: end: 20120109
  18. DESYREL [Concomitant]
     Route: 048
     Dates: end: 20120109
  19. LEXOTAN [Concomitant]
     Route: 048
     Dates: end: 20120109

REACTIONS (3)
  - RESPIRATORY DEPRESSION [None]
  - AMNESIA [None]
  - WEIGHT INCREASED [None]
